FAERS Safety Report 7647679-9 (Version None)
Quarter: 2011Q3

REPORT INFORMATION
  Report Type: 
  Country: None (occurrence: None)
  Receive Date: 20110801
  Receipt Date: 20110801
  Transmission Date: 20111222
  Serious: Yes (Other)
  Sender: FDA-Public Use
  Company Number: None

PATIENT
  Age: 54 Year
  Sex: Male
  Weight: 80.739 kg

DRUGS (1)
  1. PROPECIA [Suspect]
     Indication: ALOPECIA
     Dosage: 1MG
     Dates: start: 20090819, end: 20110428

REACTIONS (5)
  - ERECTILE DYSFUNCTION [None]
  - EJACULATION DISORDER [None]
  - DEPRESSION [None]
  - ANXIETY [None]
  - LOSS OF LIBIDO [None]
